FAERS Safety Report 9060933 (Version 3)
Quarter: 2013Q2

REPORT INFORMATION
  Report Type: Spontaneous
  Country: BR (occurrence: BR)
  Receive Date: 20130213
  Receipt Date: 20130419
  Transmission Date: 20140414
  Serious: Yes (Hospitalization, Disabling, Other)
  Sender: FDA-Public Use
  Company Number: BR-AMGEN-BRASP2013009216

PATIENT
  Age: 41 Year
  Sex: Male
  Weight: 95 kg

DRUGS (3)
  1. ENBREL [Suspect]
     Indication: RHEUMATOID ARTHRITIS
     Dosage: 50 MG, ONCE WEEKLY
     Route: 058
     Dates: start: 201112, end: 20130125
  2. METHOTREXATE [Concomitant]
     Dosage: UNSPECIFIED DOSE, STRENGTH 25 MG WEEKLY
     Dates: start: 2007
  3. FOLIC ACID [Concomitant]
     Dosage: UNSPECIFIED DOSE, STRENGTH 10 MG WEEKLY
     Dates: start: 2007

REACTIONS (21)
  - Muscular weakness [Recovered/Resolved]
  - Sciatica [Recovered/Resolved]
  - Denervation atrophy [Unknown]
  - Muscle injury [Unknown]
  - Pain in extremity [Unknown]
  - Hypoaesthesia [Unknown]
  - Spinal osteoarthritis [Unknown]
  - Haemangioma [Unknown]
  - Pleural effusion [Unknown]
  - Atelectasis [Unknown]
  - Intervertebral disc degeneration [Unknown]
  - Neuropathy peripheral [Unknown]
  - Muscle oedema [Unknown]
  - Lung disorder [Unknown]
  - Intervertebral disc protrusion [Unknown]
  - Nervous system disorder [Unknown]
  - Malaise [Unknown]
  - Throat irritation [Unknown]
  - Injection site induration [Unknown]
  - Injection site hypersensitivity [Unknown]
  - Demyelinating polyneuropathy [Unknown]
